FAERS Safety Report 4467686-7 (Version None)
Quarter: 2004Q4

REPORT INFORMATION
  Report Type: 
  Country: None (occurrence: None)
  Receive Date: 20041004
  Receipt Date: 20041004
  Transmission Date: 20050328
  Serious: Yes (Life-Threatening, Hospitalization, Disabling)
  Sender: FDA-Public Use
  Company Number: None

PATIENT
  Age: 50 Year
  Sex: Female
  Weight: 124.7392 kg

DRUGS (1)
  1. VIOXX [Suspect]
     Indication: PAIN
     Dosage: 1 PILL AS NEEDED ORAL
     Route: 048
     Dates: start: 20021201, end: 20030501

REACTIONS (5)
  - AMNESIA [None]
  - CEREBROVASCULAR ACCIDENT [None]
  - DYSPHAGIA [None]
  - FACIAL PALSY [None]
  - RETCHING [None]
